FAERS Safety Report 4969178-5 (Version None)
Quarter: 2006Q2

REPORT INFORMATION
  Report Type: 
  Country: None (occurrence: None)
  Receive Date: 20060411
  Receipt Date: 20051215
  Transmission Date: 20061013
  Serious: Yes (Other)
  Sender: FDA-Public Use
  Company Number: US-BRISTOL-MYERS SQUIBB COMPANY-13217120

PATIENT
  Age: 75 Year
  Sex: Male
  Weight: 60 kg

DRUGS (8)
  1. PARAPLATIN [Suspect]
     Route: 042
     Dates: start: 20051214
  2. DECADRON [Concomitant]
     Indication: PREMEDICATION
     Route: 042
  3. BENADRYL [Concomitant]
     Indication: PREMEDICATION
     Route: 042
  4. DYAZIDE [Concomitant]
  5. HYTRIN [Concomitant]
  6. PRILOSEC [Concomitant]
  7. MORPHINE [Concomitant]
  8. OXYCODONE [Concomitant]

REACTIONS (3)
  - HYPERHIDROSIS [None]
  - HYPOTENSION [None]
  - NAUSEA [None]
